FAERS Safety Report 19651252 (Version 1)
Quarter: 2021Q3

REPORT INFORMATION
  Report Type: Spontaneous
  Country: FR (occurrence: FR)
  Receive Date: 20210803
  Receipt Date: 20210803
  Transmission Date: 20211014
  Serious: Yes (Hospitalization)
  Sender: FDA-Public Use
  Company Number: FR-TEVA-2021-FR-1938495

PATIENT
  Age: 20 Year
  Sex: Female

DRUGS (2)
  1. LEVOFLOXACINE [Suspect]
     Active Substance: LEVOFLOXACIN
     Indication: POSTOPERATIVE WOUND INFECTION
     Dosage: DOSAGE NOT SPECIFIED
     Route: 048
     Dates: start: 20210518, end: 20210616
  2. RIFADINE [Suspect]
     Active Substance: RIFAMPIN
     Indication: POSTOPERATIVE WOUND INFECTION
     Dosage: DOSAGE NOT SPECIFIED
     Route: 048
     Dates: start: 20210519, end: 20210616

REACTIONS (1)
  - Neutropenia [Not Recovered/Not Resolved]

NARRATIVE: CASE EVENT DATE: 20210604
